FAERS Safety Report 17569305 (Version 2)
Quarter: 2021Q3

REPORT INFORMATION
  Report Type: Spontaneous
  Country: US (occurrence: US)
  Receive Date: 20200322
  Receipt Date: 20210913
  Transmission Date: 20211014
  Serious: Yes (Disabling)
  Sender: FDA-Public Use
  Company Number: US-TEVA-2020-US-1205444

PATIENT
  Age: 50 Year
  Sex: Female

DRUGS (5)
  1. CYTOXAN [Concomitant]
     Active Substance: CYCLOPHOSPHAMIDE
     Indication: BREAST CANCER FEMALE
     Dosage: NUMBER OF CYCLE ? 04, FREQUENCY ? EVERY THREE WEEKS
     Route: 042
     Dates: start: 20140910, end: 20141113
  2. DOCETAXEL SAGENT [Suspect]
     Active Substance: DOCETAXEL
     Dosage: NUMBER OF CYCLE ? 04, FREQUENCY ? EVERY THREE WEEKS?140 MG /7 ML (20 MG/ML)INTRAVENOUS SOLUTION
     Route: 042
     Dates: start: 20141002
  3. DOCETAXEL SAGENT [Suspect]
     Active Substance: DOCETAXEL
     Indication: BREAST CANCER FEMALE
     Dosage: NUMBER OF CYCLE ? 04, FREQUENCY ? EVERY THREE WEEKS?140 MG /7 ML (20 MG/ML)INTRAVENOUS SOLUTION
     Route: 042
     Dates: start: 20140910
  4. DOCETAXEL SANOFI [Suspect]
     Active Substance: DOCETAXEL
     Indication: BREAST CANCER FEMALE
     Dosage: DOCETAXEL (20 MG/ML) 1 ML INTRAVENOUS SOLUTION
     Route: 042
     Dates: start: 20141022
  5. DOCETAXEL ACCORD [Suspect]
     Active Substance: DOCETAXEL
     Indication: BREAST CANCER FEMALE
     Dosage: DOCETAXEL 160 MG/8ML (20 MG/ML) 1 ML INTRAVENOUS SOLUTION
     Route: 042
     Dates: start: 20141113

REACTIONS (4)
  - Alopecia areata [Not Recovered/Not Resolved]
  - Madarosis [Not Recovered/Not Resolved]
  - Hair texture abnormal [Not Recovered/Not Resolved]
  - Hair colour changes [Not Recovered/Not Resolved]

NARRATIVE: CASE EVENT DATE: 20141001
